FAERS Safety Report 10053013 (Version 1)
Quarter: 2014Q1

REPORT INFORMATION
  Report Type: Spontaneous
  Country: IT (occurrence: None)
  Receive Date: 20140331
  Receipt Date: 20140331
  Transmission Date: 20141002
  Serious: Yes (Hospitalization)
  Sender: FDA-Public Use
  Company Number: 2014P1002528

PATIENT
  Age: 22 Year
  Sex: Male

DRUGS (4)
  1. TOPIRAMATE [Suspect]
     Indication: UNEVALUABLE EVENT
  2. TOPIRAMATE [Suspect]
     Indication: IMPULSIVE BEHAVIOUR
  3. OLANZAPINE [Suspect]
     Indication: UNEVALUABLE EVENT
  4. OLANZAPINE [Suspect]
     Indication: IMPULSIVE BEHAVIOUR

REACTIONS (1)
  - Priapism [None]
